FAERS Safety Report 13591569 (Version 2)
Quarter: 2017Q2

REPORT INFORMATION
  Report Type: Spontaneous
  Country: FR (occurrence: FR)
  Receive Date: 20170529
  Receipt Date: 20170614
  Transmission Date: 20170830
  Serious: Yes (Other)
  Sender: FDA-Public Use
  Company Number: FR-AMGEN-FRASP2017079373

PATIENT
  Sex: Male

DRUGS (1)
  1. MIMPARA [Suspect]
     Active Substance: CINACALCET HYDROCHLORIDE
     Indication: HYPERPARATHYROIDISM
     Dosage: UNK
     Route: 065

REACTIONS (6)
  - Blood parathyroid hormone decreased [Unknown]
  - Upper limb fracture [Unknown]
  - Cardiac disorder [Unknown]
  - Infarction [Unknown]
  - Drug ineffective [Unknown]
  - Brown tumour [Unknown]

NARRATIVE: CASE EVENT DATE: 201705
